FAERS Safety Report 7659689-6 (Version None)
Quarter: 2011Q3

REPORT INFORMATION
  Report Type: 
  Country: None (occurrence: None)
  Receive Date: 20110805
  Receipt Date: 20110802
  Transmission Date: 20111222
  Serious: Yes (Death, Life-Threatening, Hospitalization)
  Sender: FDA-Public Use
  Company Number: GB-JNJFOC-20110703401

PATIENT
  Age: 74 Year
  Sex: Female

DRUGS (13)
  1. METFORMIN HCL [Concomitant]
  2. ADCAL D3 [Concomitant]
  3. FOLIC ACID [Concomitant]
  4. GOLIMUMAB [Suspect]
     Indication: RHEUMATOID ARTHRITIS
     Route: 058
     Dates: start: 20101124
  5. MOVICOL SACHET [Concomitant]
  6. HYPROMELLOSE [Concomitant]
  7. METHOTREXATE [Concomitant]
     Dosage: 9 TIMES 2.5MG
  8. LEVOTHYROXINE SODIUM [Concomitant]
  9. WARFARIN SODIUM [Concomitant]
     Dosage: ^PER INR^
  10. ALENDRONIC ACID [Concomitant]
  11. PREDNISOLONE [Concomitant]
     Dosage: AS DIRECTED
  12. ACETAMINOPHEN AND CODEINE PHOSPHATE [Concomitant]
     Dosage: 30/500, AS NECESSARY
  13. GOLIMUMAB [Suspect]
     Route: 058
     Dates: start: 20110625

REACTIONS (5)
  - VOMITING [None]
  - SYNCOPE [None]
  - PNEUMONIA [None]
  - INFECTION [None]
  - LUNG SQUAMOUS CELL CARCINOMA STAGE UNSPECIFIED [None]
